FAERS Safety Report 6256550-9 (Version None)
Quarter: 2009Q2

REPORT INFORMATION
  Report Type: 
  Country: None (occurrence: None)
  Receive Date: 20090630
  Receipt Date: 20090630
  Transmission Date: 20091009
  Serious: Yes (Other)
  Sender: FDA-Public Use
  Company Number: None

PATIENT
  Age: 21 Year
  Sex: Male
  Weight: 83.9154 kg

DRUGS (1)
  1. PROPECIA [Suspect]
     Indication: ANDROGENETIC ALOPECIA
     Dates: start: 20090615, end: 20090625

REACTIONS (6)
  - AURICULAR SWELLING [None]
  - ERYTHEMA [None]
  - EYE SWELLING [None]
  - OCULAR HYPERAEMIA [None]
  - RASH [None]
  - SWELLING FACE [None]
